FAERS Safety Report 24253364 (Version 1)
Quarter: 2024Q3

REPORT INFORMATION
  Report Type: Spontaneous
  Country: GB (occurrence: GB)
  Receive Date: 20240827
  Receipt Date: 20240827
  Transmission Date: 20241016
  Serious: Yes (Other)
  Sender: ACCORD
  Company Number: None

PATIENT
  Age: 79 Year
  Sex: Female
  Weight: 65 kg

DRUGS (7)
  1. ATORVASTATIN [Suspect]
     Active Substance: ATORVASTATIN
     Indication: Product used for unknown indication
     Dates: start: 20231225
  2. AMLODIPINE [Concomitant]
     Active Substance: AMLODIPINE BESYLATE
     Dosage: ONE AND A HALF TABLETS A DAY
     Dates: start: 20230823
  3. CARBOXYMETHYLCELLULOSE SODIUM [Concomitant]
     Active Substance: CARBOXYMETHYLCELLULOSE SODIUM
     Dosage: 3-4 TIMES A DAY IN BOTH EYES
     Dates: start: 20230823
  4. LATANOPROST [Concomitant]
     Active Substance: LATANOPROST
     Dosage: ONE DROP ONCE DAILY IN BOTH EYES.
     Dates: start: 20230823
  5. ATORVASTATIN [Concomitant]
     Active Substance: ATORVASTATIN
     Dosage: TAKE ONE DAILY AT NIGHT AS DIRECTED
     Dates: start: 20240417
  6. IBUPROFEN [Concomitant]
     Active Substance: IBUPROFEN
     Dosage: APPLY 3 TIMES/DAY
     Dates: start: 20240501
  7. ROSUVASTATIN [Concomitant]
     Active Substance: ROSUVASTATIN\ROSUVASTATIN CALCIUM
     Dosage: TAKE ONE DAILY AT NIGHT AS DIRECTED FOR CHOLEST...

REACTIONS (3)
  - Arthralgia [Recovered/Resolved]
  - Myalgia [Recovered/Resolved]
  - Pain [Recovered/Resolved]

NARRATIVE: CASE EVENT DATE: 20231225
